FAERS Safety Report 11708522 (Version 1)
Quarter: 2015Q4

REPORT INFORMATION
  Report Type: Spontaneous
  Country: US (occurrence: US)
  Receive Date: 20151104
  Receipt Date: 20151104
  Transmission Date: 20160304
  Serious: No
  Sender: FDA-Public Use
  Company Number: US-ELI_LILLY_AND_COMPANY-US201106008233

PATIENT
  Age: 47 Year
  Sex: Female

DRUGS (5)
  1. ZYRTEC [Concomitant]
     Active Substance: CETIRIZINE HYDROCHLORIDE
  2. VITAMIN D [Concomitant]
     Active Substance: CHOLECALCIFEROL
     Dosage: 2000 IU, QD
  3. FORTEO [Suspect]
     Active Substance: TERIPARATIDE
     Dosage: 20 UG, QD
     Dates: start: 20110714, end: 20110808
  4. FORTEO [Suspect]
     Active Substance: TERIPARATIDE
     Indication: OSTEOPOROSIS
     Dosage: 20 UG, QD
     Dates: end: 20110713
  5. FORTEO [Suspect]
     Active Substance: TERIPARATIDE
     Dosage: UNK, OTHER
     Dates: start: 20110809, end: 20110813

REACTIONS (13)
  - Pain [Recovering/Resolving]
  - Gait disturbance [Unknown]
  - Nausea [Recovering/Resolving]
  - Ear disorder [Recovered/Resolved]
  - Dizziness [Unknown]
  - Pyrexia [Recovering/Resolving]
  - Pain in extremity [Unknown]
  - Crying [Unknown]
  - Arthralgia [Not Recovered/Not Resolved]
  - Influenza like illness [Recovering/Resolving]
  - Malaise [Recovering/Resolving]
  - Joint swelling [Unknown]
  - Erythema [Recovered/Resolved]

NARRATIVE: CASE EVENT DATE: 20110814
